FAERS Safety Report 5382938-4 (Version None)
Quarter: 2007Q3

REPORT INFORMATION
  Report Type: 
  Country: None (occurrence: None)
  Receive Date: 20070710
  Receipt Date: 20070625
  Transmission Date: 20080115
  Serious: Yes (Hospitalization)
  Sender: FDA-Public Use
  Company Number: AU-GENENTECH-241213

PATIENT
  Sex: Male
  Weight: 64.8 kg

DRUGS (5)
  1. BEVACIZUMAB [Suspect]
     Indication: PANCREATIC CARCINOMA METASTATIC
     Dosage: 335 MG, Q2W
     Route: 042
     Dates: start: 20060804
  2. ERLOTINIB [Suspect]
     Indication: PANCREATIC CARCINOMA METASTATIC
     Dosage: 100 MG, QD
     Route: 048
     Dates: start: 20060804
  3. GEMCITABINE HCL [Suspect]
     Indication: PANCREATIC CARCINOMA METASTATIC
     Dosage: 1300 MG, Q2W
     Route: 042
     Dates: start: 20060804
  4. PARACETAMOL [Concomitant]
     Indication: DRUG USE FOR UNKNOWN INDICATION
     Dates: start: 20060615
  5. DIPHENOXYLATE HYDROCHLORIDE [Concomitant]
     Indication: DRUG USE FOR UNKNOWN INDICATION
     Dates: start: 20060926

REACTIONS (1)
  - RENAL COLIC [None]
